FAERS Safety Report 7650544-4 (Version None)
Quarter: 2011Q3

REPORT INFORMATION
  Report Type: 
  Country: None (occurrence: None)
  Receive Date: 20110802
  Receipt Date: 20110722
  Transmission Date: 20111222
  Serious: Yes (Hospitalization)
  Sender: FDA-Public Use
  Company Number: CA-CELGENEUS-028-21880-11072535

PATIENT
  Sex: Male

DRUGS (9)
  1. MORPHINE [Concomitant]
     Route: 065
  2. SENOKOT [Concomitant]
     Route: 065
  3. REVLIMID [Suspect]
     Dosage: 25 MILLIGRAM
     Route: 048
     Dates: start: 20110324
  4. GABAPENTIN [Concomitant]
     Route: 065
  5. ASPIRIN [Concomitant]
     Route: 065
  6. METFORMIN HCL [Concomitant]
     Route: 065
  7. DEXAMETHASONE [Concomitant]
     Route: 065
  8. LACTULOSE [Concomitant]
     Route: 065
  9. PAMIDRONATE DISODIUM [Concomitant]
     Route: 065

REACTIONS (3)
  - INCOHERENT [None]
  - PNEUMONIA [None]
  - NEUTROPHIL COUNT DECREASED [None]
